FAERS Safety Report 8895348 (Version 1)
Quarter: 2012Q4

REPORT INFORMATION
  Report Type: 
  Country: US (occurrence: US)
  Receive Date: 20121108
  Receipt Date: 20121108
  Transmission Date: 20130627
  Serious: No
  Sender: FDA-Public Use
  Company Number: US-PFIZER INC-2012278934

PATIENT
  Age: 57 Year
  Sex: Female
  Weight: 66.21 kg

DRUGS (1)
  1. CHANTIX [Suspect]
     Indication: SMOKING CESSATION THERAPY
     Dosage: UNK

REACTIONS (3)
  - Depression [Recovered/Resolved]
  - Abnormal dreams [Recovered/Resolved]
  - Weight increased [Recovered/Resolved]
